FAERS Safety Report 5405430-7 (Version None)
Quarter: 2007Q3

REPORT INFORMATION
  Report Type: 
  Country: None (occurrence: None)
  Receive Date: 20070803
  Receipt Date: 20070724
  Transmission Date: 20080115
  Serious: Yes (Other)
  Sender: FDA-Public Use
  Company Number: US-PFIZER INC-2007061425

PATIENT
  Sex: Male
  Weight: 70.8 kg

DRUGS (10)
  1. XANAX [Suspect]
     Indication: STRESS
  2. DIOVAN [Concomitant]
  3. DIGOXIN [Concomitant]
  4. KLOR-CON [Concomitant]
  5. ASPIRIN [Concomitant]
  6. AMBIEN [Concomitant]
  7. CLARITIN [Concomitant]
  8. SINGULAIR [Concomitant]
  9. CROMOLYN SODIUM [Concomitant]
  10. CELEXA [Concomitant]

REACTIONS (4)
  - ARTHROPOD STING [None]
  - BLOOD GLUCOSE DECREASED [None]
  - DELIRIUM [None]
  - LOSS OF CONSCIOUSNESS [None]
